FAERS Safety Report 18255378 (Version 1)
Quarter: 2020Q3

REPORT INFORMATION
  Report Type: Spontaneous
  Country: US (occurrence: US)
  Receive Date: 20200911
  Receipt Date: 20200911
  Transmission Date: 20201103
  Serious: Yes (Other)
  Sender: FDA-Public Use
  Company Number: US-STRIDES ARCOLAB LIMITED-2020SP007555

PATIENT

DRUGS (3)
  1. TACROLIMUS. [Suspect]
     Active Substance: TACROLIMUS
     Indication: RENAL TRANSPLANT
     Dosage: UNK, IMMEDIATE?RELEASE TACROLIMUS 1?18 MG/DAY
     Route: 065
  2. SODIUM POLYSTYRENE SULFONATE. [Interacting]
     Active Substance: SODIUM POLYSTYRENE SULFONATE
     Indication: HYPERKALAEMIA
     Dosage: UNK
     Route: 065
  3. TACROLIMUS. [Interacting]
     Active Substance: TACROLIMUS
     Dosage: DOSE WAS REDUCED
     Route: 065

REACTIONS (3)
  - Drug interaction [Unknown]
  - Hyperkalaemia [Recovered/Resolved]
  - Immunosuppressant drug level increased [Unknown]
